FAERS Safety Report 6610077-0 (Version None)
Quarter: 2010Q1

REPORT INFORMATION
  Report Type: 
  Country: None (occurrence: None)
  Receive Date: 20100302
  Receipt Date: 20100219
  Transmission Date: 20100710
  Serious: Yes (Other)
  Sender: FDA-Public Use
  Company Number: US-MYLANLABS-2010S1001494

PATIENT
  Age: 18 Year
  Sex: Female
  Weight: 68.04 kg

DRUGS (9)
  1. CLARAVIS [Suspect]
     Indication: ACNE
     Route: 048
     Dates: start: 20090601, end: 20090901
  2. CLARAVIS [Suspect]
     Indication: ACNE CYSTIC
     Route: 048
     Dates: start: 20090601, end: 20090901
  3. CLARAVIS [Suspect]
     Route: 048
     Dates: start: 20090901
  4. CLARAVIS [Suspect]
     Route: 048
     Dates: start: 20090901
  5. ACCUTANE [Suspect]
     Indication: ACNE
     Route: 048
  6. ACCUTANE [Suspect]
     Indication: ACNE CYSTIC
     Route: 048
  7. AMNESTEEM [Suspect]
     Indication: ACNE
     Route: 048
     Dates: end: 20100101
  8. AMNESTEEM [Suspect]
     Indication: ACNE CYSTIC
     Route: 048
     Dates: end: 20100101
  9. YAZ /01502501/ [Concomitant]
     Indication: CONTRACEPTION

REACTIONS (7)
  - ACNE [None]
  - DRUG EFFECT DECREASED [None]
  - DRUG HYPERSENSITIVITY [None]
  - DRY SKIN [None]
  - GASTROINTESTINAL HAEMORRHAGE [None]
  - HAEMATOCHEZIA [None]
  - LIP DRY [None]
